FAERS Safety Report 6841481-3 (Version None)
Quarter: 2010Q3

REPORT INFORMATION
  Report Type: 
  Country: None (occurrence: None)
  Receive Date: 20100714
  Receipt Date: 20070706
  Transmission Date: 20110219
  Serious: No
  Sender: FDA-Public Use
  Company Number: US-PFIZER INC-2007058032

PATIENT
  Sex: Female
  Weight: 63.5 kg

DRUGS (11)
  1. CHANTIX [Suspect]
     Indication: SMOKING CESSATION THERAPY
     Dates: start: 20070616, end: 20070619
  2. MUCINEX [Concomitant]
  3. XANAX [Concomitant]
  4. LASIX [Concomitant]
  5. MONTELUKAST SODIUM [Concomitant]
  6. PREDNISOLONE [Concomitant]
  7. PLAVIX [Concomitant]
  8. CALTRATE [Concomitant]
  9. CRESTOR [Concomitant]
  10. FOLIC ACID [Concomitant]
  11. NEXIUM [Concomitant]

REACTIONS (1)
  - NAUSEA [None]
